FAERS Safety Report 15587389 (Version 2)
Quarter: 2018Q4

REPORT INFORMATION
  Report Type: Spontaneous
  Country: US (occurrence: US)
  Receive Date: 20181105
  Receipt Date: 20181121
  Transmission Date: 20190205
  Serious: Yes (Other)
  Sender: FDA-Public Use
  Company Number: US-SUPERNUS PHARMACEUTICALS, INC.-2018SUP00317

PATIENT
  Age: 43 Year
  Sex: Female
  Weight: 68.03 kg

DRUGS (14)
  1. CHROMIUM [Concomitant]
     Active Substance: CHROMIC CHLORIDE\CHROMIUM
  2. TROKENDI XR [Suspect]
     Active Substance: TOPIRAMATE
     Indication: MIGRAINE
     Dosage: 100 MG, 1X/DAY
     Route: 048
     Dates: start: 2017, end: 2018
  3. POTASSIUM-SPARING LASIX [Concomitant]
     Dosage: UNK, 1X/DAY
  4. VITAMIN D3 [Concomitant]
     Active Substance: CHOLECALCIFEROL
  5. TROKENDI XR [Suspect]
     Active Substance: TOPIRAMATE
     Dosage: 200 MG 1X/DAY
     Route: 048
     Dates: start: 2018, end: 20181024
  6. ZYRTEC [Concomitant]
     Active Substance: CETIRIZINE HYDROCHLORIDE
  7. POTASSIUM [Concomitant]
     Active Substance: POTASSIUM
  8. SYNTHROID [Concomitant]
     Active Substance: LEVOTHYROXINE SODIUM
     Dosage: UNK, 1X/DAY
  9. XANAX [Concomitant]
     Active Substance: ALPRAZOLAM
     Dosage: UNK, 1X/DAY
  10. UNSPECIFIED PAIN MEDICATION [Concomitant]
     Active Substance: UNSPECIFIED INGREDIENT
     Dosage: UNK, 1X/DAY
  11. MAGNESIUM [Concomitant]
     Active Substance: MAGNESIUM
  12. TURMERIC [Concomitant]
     Active Substance: HERBALS\TURMERIC
  13. TROKENDI XR [Suspect]
     Active Substance: TOPIRAMATE
     Dosage: 250 MG 1X/DAY
     Route: 048
     Dates: start: 20181025, end: 20181026
  14. VITAMIN A [Concomitant]
     Active Substance: VITAMIN A

REACTIONS (21)
  - Head discomfort [Recovered/Resolved]
  - Dehydration [Recovered/Resolved]
  - Memory impairment [Recovering/Resolving]
  - Malaise [Not Recovered/Not Resolved]
  - Vision blurred [Recovering/Resolving]
  - Disturbance in attention [Recovering/Resolving]
  - Seizure [Recovered/Resolved]
  - Aura [Unknown]
  - Fall [Recovered/Resolved]
  - Blood pressure abnormal [Not Recovered/Not Resolved]
  - Joint injury [Unknown]
  - Palpitations [Recovered/Resolved]
  - Pain [Recovering/Resolving]
  - Coordination abnormal [Recovered/Resolved]
  - Eye swelling [Recovered/Resolved]
  - Concussion [Recovering/Resolving]
  - Head injury [Unknown]
  - Dysarthria [Recovered/Resolved]
  - Skeletal injury [Unknown]
  - Visual impairment [Unknown]
  - Tinnitus [Recovering/Resolving]

NARRATIVE: CASE EVENT DATE: 2018
